FAERS Safety Report 14673571 (Version 1)
Quarter: 2018Q1

REPORT INFORMATION
  Report Type: Spontaneous
  Country: US (occurrence: US)
  Receive Date: 20180323
  Receipt Date: 20180323
  Transmission Date: 20180509
  Serious: No
  Sender: FDA-Public Use
  Company Number: US-EISAI MEDICAL RESEARCH-EC-2018-037050

PATIENT
  Age: 21 Year
  Sex: Male

DRUGS (3)
  1. BANZEL [Suspect]
     Active Substance: RUFINAMIDE
     Dosage: TITRATED UP
     Route: 048
     Dates: start: 2018, end: 2018
  2. BANZEL [Suspect]
     Active Substance: RUFINAMIDE
     Route: 048
     Dates: start: 2018
  3. BANZEL [Suspect]
     Active Substance: RUFINAMIDE
     Indication: SEIZURE
     Route: 048
     Dates: start: 20180118, end: 2018

REACTIONS (1)
  - Flushing [Not Recovered/Not Resolved]

NARRATIVE: CASE EVENT DATE: 20180305
